FAERS Safety Report 7829732-X (Version None)
Quarter: 2011Q4

REPORT INFORMATION
  Report Type: 
  Country: None (occurrence: None)
  Receive Date: 20111021
  Receipt Date: 20111010
  Transmission Date: 20120403
  Serious: Yes (Other)
  Sender: FDA-Public Use
  Company Number: SE-JNJFOC-20111007655

PATIENT
  Age: 42 Year
  Sex: Female

DRUGS (3)
  1. PREDNISOLONE [Concomitant]
     Route: 065
  2. REMICADE [Suspect]
     Indication: PRODUCT USED FOR UNKNOWN INDICATION
     Route: 042
     Dates: start: 20110101
  3. MYCOSTATIN [Concomitant]
     Indication: ORAL FUNGAL INFECTION
     Route: 065

REACTIONS (3)
  - ARTHRITIS [None]
  - ORAL FUNGAL INFECTION [None]
  - HAEMORRHAGE [None]
